FAERS Safety Report 19677136 (Version 1)
Quarter: 2021Q3

REPORT INFORMATION
  Report Type: Spontaneous
  Country: CN (occurrence: CN)
  Receive Date: 20210809
  Receipt Date: 20210809
  Transmission Date: 20211014
  Serious: Yes (Life-Threatening, Hospitalization, Other)
  Sender: FDA-Public Use
  Company Number: CN-ACCORD-234819

PATIENT
  Age: 62 Year
  Sex: Male

DRUGS (3)
  1. CLOZAPINE. [Suspect]
     Active Substance: CLOZAPINE
     Indication: SCHIZOPHRENIA
  2. CLOZAPINE. [Suspect]
     Active Substance: CLOZAPINE
     Indication: SCHIZOPHRENIA
  3. QUETIAPINE/QUETIAPINE FUMARATE [Concomitant]
     Active Substance: QUETIAPINE FUMARATE
     Indication: SCHIZOPHRENIA

REACTIONS (10)
  - Loss of consciousness [Recovered/Resolved]
  - Myoclonus [Recovered/Resolved]
  - Respiratory failure [Recovered/Resolved]
  - Vomiting [Recovered/Resolved]
  - Drug level increased [Recovered/Resolved]
  - Haemoptysis [Recovered/Resolved]
  - Pneumonia aspiration [Recovered/Resolved]
  - Pleural effusion [Recovered/Resolved]
  - Bacterial infection [Recovered/Resolved]
  - Generalised tonic-clonic seizure [Recovered/Resolved]
